FAERS Safety Report 6695443-X (Version None)
Quarter: 2010Q2

REPORT INFORMATION
  Report Type: 
  Country: None (occurrence: None)
  Receive Date: 20100422
  Receipt Date: 20100422
  Transmission Date: 20101027
  Serious: No
  Sender: FDA-Public Use
  Company Number: None

PATIENT
  Age: 77 Year
  Sex: Female
  Weight: 56.6996 kg

DRUGS (1)
  1. CORDARONE [Suspect]
     Indication: ATRIAL FIBRILLATION
     Dosage: 1 - TWICE DAILY TOOK ONLY ORAL
     Route: 048
     Dates: end: 20100408

REACTIONS (4)
  - DRUG HYPERSENSITIVITY [None]
  - EYE DISORDER [None]
  - LETHARGY [None]
  - LIP SWELLING [None]
